FAERS Safety Report 5002742-6 (Version None)
Quarter: 2006Q2

REPORT INFORMATION
  Report Type: 
  Country: None (occurrence: None)
  Receive Date: 20060516
  Receipt Date: 20060509
  Transmission Date: 20061013
  Serious: Yes (Hospitalization)
  Sender: FDA-Public Use
  Company Number: US-JNJFOC-20060502558

PATIENT
  Sex: Female
  Weight: 81.65 kg

DRUGS (8)
  1. DURAGESIC-100 [Suspect]
     Route: 062
  2. PROZAC [Concomitant]
     Indication: DEPRESSION
     Route: 048
  3. PREMARIN [Concomitant]
     Indication: HORMONE REPLACEMENT THERAPY
     Route: 048
  4. ZONEGRAN [Concomitant]
     Indication: DEPRESSION
     Route: 048
  5. XANAX [Concomitant]
     Indication: ANXIETY
     Dosage: 1 MG, 3 IN 1 DAY, AS NEEDED, ORAL
     Route: 048
  6. NORCO [Concomitant]
     Route: 048
  7. NORCO [Concomitant]
     Indication: BREAKTHROUGH PAIN
     Dosage: 10 MG HYDROCODONE/325 MG ACETAMINOPHEN, 3 IN 1 DAY AS NEEDED, ORAL
     Route: 048
  8. LASIX [Concomitant]
     Dosage: 20 MG DAILY AS NEEDED, ORAL
     Route: 048

REACTIONS (3)
  - DEHYDRATION [None]
  - NAUSEA [None]
  - PNEUMONIA [None]
